FAERS Safety Report 9187627 (Version 2)
Quarter: 2013Q2

REPORT INFORMATION
  Report Type: Report from Study
  Country: JP (occurrence: JP)
  Receive Date: 20130325
  Receipt Date: 20130426
  Transmission Date: 20140414
  Serious: Yes (Hospitalization)
  Sender: FDA-Public Use
  Company Number: PHHY2013JP028299

PATIENT
  Age: 80 Year
  Sex: Female
  Weight: 42 kg

DRUGS (6)
  1. EXELON [Suspect]
     Indication: DEMENTIA ALZHEIMER^S TYPE
     Dosage: 4.5 MG, DAILY
     Route: 062
     Dates: start: 20120509, end: 20120605
  2. EXELON [Suspect]
     Dosage: 9 MG, DAILY
     Route: 062
     Dates: start: 20120606, end: 20120701
  3. EXELON [Suspect]
     Dosage: 13.5 MG, DAILY
     Route: 062
     Dates: start: 20120702, end: 20120812
  4. EXELON [Suspect]
     Dosage: 18 MG, DAILY
     Route: 062
     Dates: start: 20120813, end: 20120921
  5. EDIROL [Concomitant]
     Indication: OSTEOPOROSIS
     Dosage: 0.8 UG, UNK
     Route: 048
     Dates: start: 20120509, end: 20120921
  6. LEVOTOMIN [Concomitant]
     Indication: SCHIZOPHRENIA
     Dosage: 20 MG, UNK
     Route: 048
     Dates: start: 20120509, end: 20120921

REACTIONS (2)
  - Subdural haematoma [Unknown]
  - Fall [Unknown]
